FAERS Safety Report 11967518 (Version 2)
Quarter: 2016Q2

REPORT INFORMATION
  Report Type: Report from Study
  Country: BR (occurrence: BR)
  Receive Date: 20160127
  Receipt Date: 20160428
  Transmission Date: 20160815
  Serious: Yes (Hospitalization, Congenital Anomaly)
  Sender: FDA-Public Use
  Company Number: BR-BIOGEN-2016BI00182137

PATIENT

DRUGS (1)
  1. AVONEX [Suspect]
     Active Substance: INTERFERON BETA-1A
     Indication: MATERNAL EXPOSURE TIMING UNSPECIFIED
     Route: 064
     Dates: start: 200612, end: 200701

REACTIONS (2)
  - Foetal exposure timing unspecified [Recovered/Resolved]
  - Talipes [Recovered/Resolved]

NARRATIVE: CASE EVENT DATE: 2007
